FAERS Safety Report 9722625 (Version 1)
Quarter: 2013Q3

REPORT INFORMATION
  Report Type: Spontaneous
  Country: US (occurrence: None)
  Receive Date: 20130702
  Receipt Date: 20130702
  Transmission Date: 20140515
  Serious: Yes (Hospitalization)
  Sender: FDA-Public Use
  Company Number: KAMADA LTD MFR #38803

PATIENT
  Age: 67 Year
  Sex: Female
  Weight: 90.72 kg

DRUGS (8)
  1. GLASSIA [Suspect]
     Indication: ALPHA-1 ANTI-TRYPSIN DEFICIENCY
     Route: 042
     Dates: start: 2010
  2. LASIX [Concomitant]
  3. HEPARIN FLUSH [Concomitant]
  4. VENTAVIS [Concomitant]
  5. ADCIRCA [Concomitant]
  6. PULMICORT [Concomitant]
  7. OMEGA-3 [Concomitant]
  8. EYE DROPS [Concomitant]

REACTIONS (4)
  - Cataract operation [None]
  - Infection [None]
  - Pneumonia [None]
  - Dehydration [None]
